FAERS Safety Report 8758260 (Version 1)
Quarter: 2012Q4

REPORT INFORMATION
  Report Type: Spontaneous
  Country: US (occurrence: None)
  Receive Date: 20120828
  Receipt Date: 20120828
  Transmission Date: 20130627
  Serious: Yes (Death, Other)
  Sender: FDA-Public Use
  Company Number: None

PATIENT
  Age: 19 Year
  Sex: Female
  Weight: 48.54 kg

DRUGS (1)
  1. CYTOTEC [Suspect]
     Indication: LABOR INDUCTION
     Dates: start: 20110810, end: 20110810

REACTIONS (2)
  - Maternal exposure during pregnancy [None]
  - Premature separation of placenta [None]
